FAERS Safety Report 8128059-9 (Version None)
Quarter: 2011Q4

REPORT INFORMATION
  Report Type: 
  Country: None (occurrence: None)
  Receive Date: 20111227
  Receipt Date: 20110906
  Transmission Date: 20120403
  Serious: Yes (Other)
  Sender: FDA-Public Use
  Company Number: PHEH2011US03560

PATIENT
  Age: 43 Year
  Sex: Female

DRUGS (5)
  1. OMEGA 3 (FISH OIL) CAPSULE [Concomitant]
     Dates: start: 20110101
  2. PROVIGIL [Concomitant]
  3. GILENYA [Suspect]
     Dosage: 0.5 MG, DAILY, ORAL
     Route: 048
  4. CALCIUM (CALCIUM) TABLET [Concomitant]
  5. MAGNESIUM (MAGNESIUM) CAPSULE [Concomitant]

REACTIONS (2)
  - OROPHARYNGEAL PAIN [None]
  - ASTHENIA [None]
